FAERS Safety Report 8481063-3 (Version None)
Quarter: 2012Q3

REPORT INFORMATION
  Report Type: 
  Country: None (occurrence: None)
  Receive Date: 20120702
  Receipt Date: 20120625
  Transmission Date: 20120928
  Serious: Yes (Other)
  Sender: FDA-Public Use
  Company Number: PHHY2012CA055706

PATIENT
  Sex: Female
  Weight: 60 kg

DRUGS (8)
  1. VITAMIN D [Concomitant]
     Dosage: 1000 IU, UNK
     Dates: start: 20090601
  2. DIDROCAL [Concomitant]
     Dosage: 400 MG, QD
  3. EVISTA [Concomitant]
     Dosage: 670 MG, QD
  4. ZOLEDRONOC ACID [Suspect]
     Dosage: 5 MG/100 ML
     Route: 042
     Dates: start: 20110407
  5. ZOLEDRONOC ACID [Suspect]
     Indication: OSTEOPOROSIS
     Dosage: 5 MG/100 ML
     Route: 042
     Dates: start: 20100317
  6. FORTEO [Concomitant]
     Dosage: 20 MG, QD
  7. MIACALCIN [Concomitant]
     Dosage: 200 UL, UNK
  8. CALCIUM [Concomitant]
     Dosage: 650 MG, QD
     Dates: start: 20090601

REACTIONS (1)
  - FOOT FRACTURE [None]
